FAERS Safety Report 12548324 (Version 1)
Quarter: 2016Q3

REPORT INFORMATION
  Report Type: Spontaneous
  Country: US (occurrence: None)
  Receive Date: 20160711
  Receipt Date: 20160711
  Transmission Date: 20161109
  Serious: Yes (Disabling)
  Sender: FDA-Public Use
  Company Number: None

PATIENT
  Age: 58 Year
  Sex: Female
  Weight: 61.24 kg

DRUGS (5)
  1. FLUCONAZOLE TABLET USP 150MG, 150 MG CITRON PHARMA LLC [Suspect]
     Active Substance: FLUCONAZOLE
     Indication: FUNGAL SKIN INFECTION
     Dosage: 2 TABLET(S) 2, 2 THEN 2 TAKEN BY MOUTH
     Route: 048
     Dates: start: 20160615, end: 20160622
  2. VITAMIN B [Concomitant]
     Active Substance: VITAMIN B
  3. SYNTHROID [Concomitant]
     Active Substance: LEVOTHYROXINE SODIUM
  4. PREMARIN [Concomitant]
     Active Substance: ESTROGENS, CONJUGATED
  5. VITAMIN D [Concomitant]
     Active Substance: CHOLECALCIFEROL

REACTIONS (12)
  - Diarrhoea [None]
  - Cough [None]
  - Malaise [None]
  - Bronchitis [None]
  - Alcohol use [None]
  - Headache [None]
  - Vomiting [None]
  - Product label issue [None]
  - Alcohol intolerance [None]
  - Dyspnoea [None]
  - Decreased appetite [None]
  - Influenza [None]

NARRATIVE: CASE EVENT DATE: 20160623
